FAERS Safety Report 5616374-X (Version None)
Quarter: 2008Q1

REPORT INFORMATION
  Report Type: 
  Country: None (occurrence: None)
  Receive Date: 20080205
  Receipt Date: 20080205
  Transmission Date: 20080703
  Serious: Yes (Disabling)
  Sender: FDA-Public Use
  Company Number: None

PATIENT
  Sex: Male
  Weight: 79.3795 kg

DRUGS (1)
  1. SKELAXIN [Suspect]
     Indication: MUSCLE SPASMS
     Dosage: 1/2 TABLET 4 TIMES PER DAY IF NEEDED MOUTH
     Route: 048
     Dates: start: 20060119

REACTIONS (4)
  - BACK DISORDER [None]
  - CARPAL TUNNEL SYNDROME [None]
  - MUSCULOSKELETAL DISORDER [None]
  - NONSPECIFIC REACTION [None]
